FAERS Safety Report 16877186 (Version 5)
Quarter: 2020Q1

REPORT INFORMATION
  Report Type: Spontaneous
  Country: IT (occurrence: IT)
  Receive Date: 20191002
  Receipt Date: 20200213
  Transmission Date: 20200409
  Serious: Yes (Hospitalization, Other)
  Sender: FDA-Public Use
  Company Number: IT-PFIZER INC-2019424955

PATIENT
  Age: 55 Year
  Sex: Female
  Weight: 60 kg

DRUGS (15)
  1. SERTRALINE HCL [Suspect]
     Active Substance: SERTRALINE HYDROCHLORIDE
     Indication: DEPRESSION
     Dosage: UNK
     Route: 048
  2. GANCICLOVIR. [Concomitant]
     Active Substance: GANCICLOVIR
     Indication: ENCEPHALITIS VIRAL
     Dosage: UNK
     Route: 065
  3. MACROGOL [Concomitant]
     Active Substance: POLYETHYLENE GLYCOLS
     Dosage: UNK
     Route: 065
  4. BIPERIDEN [Concomitant]
     Active Substance: BIPERIDEN
     Dosage: UNK
  5. ROSUVASTATIN. [Suspect]
     Active Substance: ROSUVASTATIN
     Dosage: UNK
     Route: 065
     Dates: end: 20190729
  6. ADEMETIONINE [Suspect]
     Active Substance: ADEMETIONINE
     Indication: DEPRESSION
     Dosage: UNK
     Route: 065
  7. LEVOFLOXACIN. [Concomitant]
     Active Substance: LEVOFLOXACIN
     Indication: LUNG CONSOLIDATION
     Dosage: UNK
     Route: 065
  8. AMLODIPINE AND OLMESARTAN MEDOXOMIL [Concomitant]
     Active Substance: AMLODIPINE BESYLATE\OLMESARTAN MEDOXOMIL
     Dosage: UNK
     Route: 065
  9. FENOFIBRATE. [Suspect]
     Active Substance: FENOFIBRATE
     Dosage: UNK
     Route: 065
     Dates: end: 20190729
  10. CEFTRIAXONE. [Concomitant]
     Active Substance: CEFTRIAXONE
     Indication: LUNG CONSOLIDATION
     Dosage: UNK
     Route: 065
  11. BETAHISTINE [Concomitant]
     Active Substance: BETAHISTINE
     Dosage: UNK
     Route: 065
  12. DELORAZEPAM [Suspect]
     Active Substance: DELORAZEPAM
     Dosage: UNK
     Route: 065
  13. PANTOPRAZOLE [Concomitant]
     Active Substance: PANTOPRAZOLE
     Dosage: UNK
     Route: 065
  14. TRAZODONE HYDROCHLORIDE. [Interacting]
     Active Substance: TRAZODONE HYDROCHLORIDE
     Indication: DEPRESSION
     Dosage: UNK
     Route: 065
     Dates: start: 20190728, end: 20190729
  15. LURASIDONE [Suspect]
     Active Substance: LURASIDONE
     Indication: DEPRESSION
     Dosage: UNK
     Route: 065
     Dates: start: 20190301, end: 20190722

REACTIONS (4)
  - Rhabdomyolysis [Recovered/Resolved]
  - Renal failure [Recovered/Resolved]
  - Serotonin syndrome [Recovered/Resolved]
  - Drug interaction [Recovered/Resolved]

NARRATIVE: CASE EVENT DATE: 20190729
